FAERS Safety Report 4640727-X (Version None)
Quarter: 2005Q2

REPORT INFORMATION
  Report Type: 
  Country: None (occurrence: None)
  Receive Date: 20050419
  Receipt Date: 20050127
  Transmission Date: 20051028
  Serious: No
  Sender: FDA-Public Use
  Company Number: 10048

PATIENT
  Age: 15 Year

DRUGS (5)
  1. METHOTREXATE [Suspect]
     Indication: JUVENILE ARTHRITIS
     Dosage: 10 MG FORTNIGHTLY; SC
     Route: 058
  2. ETANERCEPT [Suspect]
     Indication: POLYARTHRITIS
     Dosage: 20 MG 2/WK; SC
     Route: 058
     Dates: start: 20040324, end: 20040616
  3. ACETAMINOPHEN [Suspect]
     Dosage: 10 MG WEEKLY, PO
     Route: 048
     Dates: start: 20040617
  4. FOLIC ACID [Concomitant]
  5. ONDANSETRON [Concomitant]

REACTIONS (4)
  - CONDITION AGGRAVATED [None]
  - ECZEMA [None]
  - REFUSAL OF TREATMENT BY PATIENT [None]
  - TREATMENT NONCOMPLIANCE [None]
